FAERS Safety Report 11292215 (Version 1)
Quarter: 2015Q3

REPORT INFORMATION
  Report Type: Spontaneous
  Country: US (occurrence: None)
  Receive Date: 20150721
  Receipt Date: 20150721
  Transmission Date: 20151125
  Serious: No
  Sender: FDA-Public Use
  Company Number: None

PATIENT
  Age: 58 Year
  Sex: Female
  Weight: 90.72 kg

DRUGS (13)
  1. DULERA [Concomitant]
     Active Substance: FORMOTEROL FUMARATE DIHYDRATE\MOMETASONE FUROATE
  2. AZOPT [Concomitant]
     Active Substance: BRINZOLAMIDE
  3. CRESTOR [Concomitant]
     Active Substance: ROSUVASTATIN CALCIUM
  4. LUMAGAN [Concomitant]
  5. CELEXA [Concomitant]
     Active Substance: CITALOPRAM HYDROBROMIDE
  6. ASA [Concomitant]
     Active Substance: ASPIRIN
  7. SINGULAIR [Concomitant]
     Active Substance: MONTELUKAST SODIUM
  8. MAXAIR [Concomitant]
     Active Substance: PIRBUTEROL ACETATE
  9. LASIX [Concomitant]
     Active Substance: FUROSEMIDE
  10. VITAMIN D [Concomitant]
     Active Substance: CHOLECALCIFEROL
  11. RECLAST [Suspect]
     Active Substance: ZOLEDRONIC ACID
     Indication: OSTEOPOROSIS
     Dates: start: 20150618, end: 20150618
  12. FENOFIBRIC ACID. [Concomitant]
     Active Substance: FENOFIBRIC ACID
  13. SEROQUEL [Concomitant]
     Active Substance: QUETIAPINE FUMARATE

REACTIONS (4)
  - Dysgraphia [None]
  - Movement disorder [None]
  - Arthropathy [None]
  - Pain [None]

NARRATIVE: CASE EVENT DATE: 20150618
